FAERS Safety Report 23460105 (Version 1)
Quarter: 2024Q1

REPORT INFORMATION
  Report Type: Spontaneous
  Country: US (occurrence: US)
  Receive Date: 20240131
  Receipt Date: 20240131
  Transmission Date: 20240409
  Serious: Yes (Hospitalization)
  Sender: FDA-Public Use
  Company Number: US-STRIDES ARCOLAB LIMITED-2023SP002849

PATIENT
  Age: 12 Year
  Sex: Male

DRUGS (10)
  1. CABERGOLINE [Suspect]
     Active Substance: CABERGOLINE
     Indication: Pancreatic neuroendocrine tumour metastatic
     Dosage: UNK
     Route: 065
  2. CABERGOLINE [Suspect]
     Active Substance: CABERGOLINE
     Indication: Cushing^s syndrome
  3. LANREOTIDE [Suspect]
     Active Substance: LANREOTIDE
     Indication: Pancreatic neuroendocrine tumour metastatic
     Dosage: UNK
     Route: 065
  4. LANREOTIDE [Suspect]
     Active Substance: LANREOTIDE
     Indication: Cushing^s syndrome
  5. SUNITINIB [Suspect]
     Active Substance: SUNITINIB
     Indication: Pancreatic neuroendocrine tumour metastatic
     Dosage: UNK
     Route: 065
  6. SUNITINIB [Suspect]
     Active Substance: SUNITINIB
     Indication: Cushing^s syndrome
  7. SPIRONOLACTONE [Suspect]
     Active Substance: SPIRONOLACTONE
     Indication: Pancreatic neuroendocrine tumour metastatic
     Dosage: UNK
     Route: 065
  8. SPIRONOLACTONE [Suspect]
     Active Substance: SPIRONOLACTONE
     Indication: Cushing^s syndrome
  9. METYRAPONE [Suspect]
     Active Substance: METYRAPONE
     Indication: Pancreatic neuroendocrine tumour metastatic
     Dosage: UNK
     Route: 065
  10. METYRAPONE [Suspect]
     Active Substance: METYRAPONE
     Indication: Cushing^s syndrome

REACTIONS (1)
  - Drug ineffective for unapproved indication [Unknown]
